FAERS Safety Report 13214148 (Version 3)
Quarter: 2017Q2

REPORT INFORMATION
  Report Type: Spontaneous
  Country: US (occurrence: US)
  Receive Date: 20170210
  Receipt Date: 20170426
  Transmission Date: 20170830
  Serious: Yes (Other)
  Sender: FDA-Public Use
  Company Number: US-PFIZER INC-2017054200

PATIENT
  Age: 17 Year
  Sex: Male

DRUGS (9)
  1. SEVOFLURANE. [Concomitant]
     Active Substance: SEVOFLURANE
     Indication: ANAESTHESIA
     Dosage: 2 %
  2. MERCAPTOPURINE. [Concomitant]
     Active Substance: MERCAPTOPURINE
     Dosage: 75 MG, ALTERNATE DAY
  3. SUCCINYLCHOLINE [Concomitant]
     Active Substance: SUCCINYLCHOLINE
     Indication: PROPHYLAXIS
     Dosage: 100 MG
  4. MESALAMINE. [Concomitant]
     Active Substance: MESALAMINE
     Dosage: 2.4 MG, DAILY
  5. OMEPRAZOLE. [Concomitant]
     Active Substance: OMEPRAZOLE
     Dosage: 20 MG, 2X/DAY
  6. MERCAPTOPURINE. [Concomitant]
     Active Substance: MERCAPTOPURINE
     Dosage: 100 MG, ALTERNATE DAY
  7. MULTIVITAMIN [Concomitant]
     Active Substance: VITAMINS
     Dosage: A MULTIVITAMIN DAILY
  8. PROPOFOL. [Suspect]
     Active Substance: PROPOFOL
     Indication: ANAESTHESIA
     Dosage: 200 MG
  9. LIDOCAINE. [Concomitant]
     Active Substance: LIDOCAINE
     Indication: ANAESTHESIA
     Dosage: 60 MG

REACTIONS (2)
  - Extrapyramidal disorder [Recovered/Resolved]
  - Oculogyric crisis [Recovered/Resolved]
